FAERS Safety Report 8117914-1 (Version None)
Quarter: 2012Q1

REPORT INFORMATION
  Report Type: 
  Country: None (occurrence: None)
  Receive Date: 20120131
  Receipt Date: 20120125
  Transmission Date: 20120608
  Serious: Yes (Other)
  Sender: FDA-Public Use
  Company Number: 2011MA000554

PATIENT
  Age: 30 Year
  Sex: Female

DRUGS (3)
  1. BETAMETHASONE [Suspect]
     Indication: MATERNAL THERAPY TO ENHANCE FOETAL LUNG MATURITY
     Dosage: 12 MG;X2;IM
     Route: 030
  2. BETAMETHASONE VALERATE [Suspect]
     Indication: MATERNAL THERAPY TO ENHANCE FOETAL LUNG MATURITY
     Dosage: 12 MG;X2;IM
     Route: 030
  3. NIFEDIPINE [Suspect]
     Indication: MATERNAL THERAPY TO ENHANCE FOETAL LUNG MATURITY
     Dosage: ;PO
     Route: 048

REACTIONS (21)
  - FEELING GUILTY [None]
  - STARING [None]
  - ACTIVITIES OF DAILY LIVING IMPAIRED [None]
  - URINARY TRACT INFECTION [None]
  - MATERNAL EXPOSURE DURING PREGNANCY [None]
  - DELUSION [None]
  - DELIRIUM [None]
  - DELUSION OF REFERENCE [None]
  - PANIC ATTACK [None]
  - DISTURBANCE IN ATTENTION [None]
  - HALLUCINATION, AUDITORY [None]
  - PSYCHOTIC DISORDER [None]
  - BIPOLAR DISORDER [None]
  - ANXIETY [None]
  - EUPHORIC MOOD [None]
  - ABNORMAL BEHAVIOUR [None]
  - RESTLESSNESS [None]
  - DEPRESSED MOOD [None]
  - THINKING ABNORMAL [None]
  - FEAR [None]
  - PARANOIA [None]
